FAERS Safety Report 7345748-4 (Version None)
Quarter: 2011Q1

REPORT INFORMATION
  Report Type: 
  Country: None (occurrence: None)
  Receive Date: 20110308
  Receipt Date: 20110308
  Transmission Date: 20110831
  Serious: Yes (Life-Threatening, Hospitalization, Disabling)
  Sender: FDA-Public Use
  Company Number: None

PATIENT
  Sex: Male
  Weight: 86.6 kg

DRUGS (1)
  1. OXYCODONE CR 40 MG PURDUE PHARMA LP [Suspect]
     Indication: PAIN
     Dosage: 40 MG TWICE DAILY PO
     Route: 048
     Dates: start: 20101128, end: 20101202

REACTIONS (1)
  - INAPPROPRIATE ANTIDIURETIC HORMONE SECRETION [None]
